FAERS Safety Report 4307263-1 (Version None)
Quarter: 2004Q1

REPORT INFORMATION
  Report Type: 
  Country: None (occurrence: None)
  Receive Date: 20040227
  Receipt Date: 20040219
  Transmission Date: 20041129
  Serious: Yes (Disabling)
  Sender: FDA-Public Use
  Company Number: WAES 0402GBR00226

PATIENT
  Age: 35 Year
  Sex: Male

DRUGS (1)
  1. CRIXIVAN [Suspect]
     Indication: HIV INFECTION
     Route: 048
     Dates: start: 19971101, end: 19990101

REACTIONS (5)
  - ASEPTIC NECROSIS BONE [None]
  - CHONDROPATHY [None]
  - JOINT EFFUSION [None]
  - JOINT RANGE OF MOTION DECREASED [None]
  - PLASMA VISCOSITY ABNORMAL [None]
